FAERS Safety Report 8974259 (Version 1)
Quarter: 2012Q4

REPORT INFORMATION
  Report Type: Spontaneous
  Country: US (occurrence: None)
  Receive Date: 20121217
  Receipt Date: 20121217
  Transmission Date: 20130627
  Serious: Yes (Hospitalization)
  Sender: FDA-Public Use
  Company Number: None

PATIENT
  Age: 83 Year
  Sex: Male
  Weight: 86.2 kg

DRUGS (14)
  1. ERLOTINIB [Suspect]
     Route: 048
     Dates: start: 20121207
  2. FUROSEMIDE (LASIX) [Concomitant]
  3. MECLIZINE [Concomitant]
  4. WARFARIN [Concomitant]
  5. CYANOCOBALAMIN [Concomitant]
  6. VITAMIN B12 [Suspect]
  7. DEXAMETHASONE [Concomitant]
  8. POTASSIUM CHLORIDE SR (KLOR-CON M20) [Concomitant]
  9. CLINDAMYCIN [Concomitant]
  10. ERLOTINIB (TARCEVA) [Concomitant]
  11. DICLOFENAC SODIUM [Concomitant]
  12. FOLIC ACID [Concomitant]
  13. CELECOXIB (CELEBREX) [Concomitant]
  14. PEMETREXED [Suspect]
     Dosage: 1025mg every 21 days IV
     Route: 042
     Dates: start: 20121206

REACTIONS (3)
  - Pyrexia [None]
  - Vomiting [None]
  - Asthenia [None]
